FAERS Safety Report 6995854-9 (Version None)
Quarter: 2010Q3

REPORT INFORMATION
  Report Type: 
  Country: None (occurrence: None)
  Receive Date: 20100918
  Receipt Date: 20081107
  Transmission Date: 20110219
  Serious: No
  Sender: FDA-Public Use
  Company Number: US-WYE-H06789508

PATIENT
  Sex: Female
  Weight: 60.84 kg

DRUGS (6)
  1. EFFEXOR XR [Suspect]
     Indication: DEPRESSION
     Route: 048
     Dates: start: 20040901, end: 20081001
  2. EFFEXOR XR [Suspect]
     Indication: ANXIETY
  3. AMBIEN [Concomitant]
  4. SYNTHROID [Concomitant]
  5. EFFEXOR [Suspect]
     Indication: DEPRESSION
     Route: 048
     Dates: start: 20081001
  6. EFFEXOR [Suspect]
     Indication: ANXIETY

REACTIONS (5)
  - DIARRHOEA [None]
  - DRUG WITHDRAWAL SYNDROME [None]
  - FEELING ABNORMAL [None]
  - MALAISE [None]
  - NAUSEA [None]
